FAERS Safety Report 8887036 (Version 5)
Quarter: 2013Q1

REPORT INFORMATION
  Report Type: Spontaneous
  Country: US (occurrence: US)
  Receive Date: 20121105
  Receipt Date: 20130108
  Transmission Date: 20140127
  Serious: Yes (Hospitalization)
  Sender: FDA-Public Use
  Company Number: US-JNJFOC-20121101438

PATIENT
  Age: 66 Year
  Sex: Male
  Weight: 122.47 kg

DRUGS (5)
  1. XARELTO [Suspect]
     Indication: CORONARY ARTERY DISEASE
     Route: 048
     Dates: start: 20120420, end: 201210
  2. XARELTO [Suspect]
     Indication: CEREBROVASCULAR ACCIDENT PROPHYLAXIS
     Route: 048
     Dates: start: 20120420, end: 201210
  3. XARELTO [Suspect]
     Indication: ATRIAL FIBRILLATION
     Route: 048
     Dates: start: 20120420, end: 201210
  4. ASPIRIN [Suspect]
     Indication: ANTIPLATELET THERAPY
     Route: 065
  5. ALL OTHER MEDICATION [Concomitant]

REACTIONS (4)
  - Haemorrhage intracranial [Not Recovered/Not Resolved]
  - Hypertension [Unknown]
  - Atrial fibrillation [Unknown]
  - Mental status changes [Unknown]
